FAERS Safety Report 9532156 (Version 3)
Quarter: 2013Q4

REPORT INFORMATION
  Report Type: Report from Study
  Country: CA (occurrence: CA)
  Receive Date: 20130918
  Receipt Date: 20131008
  Transmission Date: 20140711
  Serious: Yes (Hospitalization, Other)
  Sender: FDA-Public Use
  Company Number: CA-ABBVIE-13P-028-1143101-00

PATIENT
  Sex: Female

DRUGS (1)
  1. HUMIRA [Suspect]
     Indication: CROHN^S DISEASE
     Route: 058
     Dates: start: 20091223, end: 20130829

REACTIONS (6)
  - Pulse abnormal [Unknown]
  - Abdominal pain upper [Unknown]
  - Hypotension [Unknown]
  - Dehydration [Unknown]
  - Foreign body [Recovered/Resolved]
  - Drug ineffective [Unknown]
